FAERS Safety Report 7650850-3 (Version None)
Quarter: 2011Q3

REPORT INFORMATION
  Report Type: 
  Country: None (occurrence: None)
  Receive Date: 20110727
  Receipt Date: 20110712
  Transmission Date: 20111222
  Serious: Yes (Other)
  Sender: FDA-Public Use
  Company Number: B0734175A

PATIENT
  Age: 9 Year
  Sex: Male

DRUGS (6)
  1. LAMIVUDINE [Suspect]
     Indication: HIV INFECTION
  2. EFAVIRENZ [Suspect]
     Indication: HIV INFECTION
  3. FLUCONAZOLE [Concomitant]
  4. COTRIM [Concomitant]
  5. AMPHOTERICIN B [Concomitant]
  6. STAVUDINE [Suspect]
     Indication: HIV INFECTION

REACTIONS (3)
  - CRYPTOCOCCOSIS [None]
  - IMMUNE RECONSTITUTION SYNDROME [None]
  - FOCAL SEGMENTAL GLOMERULOSCLEROSIS [None]
